FAERS Safety Report 6021362-8 (Version None)
Quarter: 2008Q4

REPORT INFORMATION
  Report Type: 
  Country: None (occurrence: None)
  Receive Date: 20081229
  Receipt Date: 20081222
  Transmission Date: 20090506
  Serious: No
  Sender: FDA-Public Use
  Company Number: B0544465A

PATIENT
  Age: 41 Year
  Sex: Male

DRUGS (4)
  1. ZOVIRAX [Suspect]
     Indication: DRUG USE FOR UNKNOWN INDICATION
     Dosage: 250MG THREE TIMES PER DAY
     Route: 042
     Dates: start: 20081009
  2. BRUFEN [Concomitant]
     Dosage: 600MG PER DAY
     Route: 048
     Dates: start: 20081009
  3. MUCOSTA [Concomitant]
     Route: 048
     Dates: start: 20081009
  4. CYANOCOBALAMIN [Concomitant]
     Dosage: 750MG PER DAY
     Route: 048
     Dates: start: 20081009

REACTIONS (3)
  - DERMATITIS ALLERGIC [None]
  - ERYTHEMA [None]
  - RASH ERYTHEMATOUS [None]
